FAERS Safety Report 4506954-7 (Version None)
Quarter: 2004Q4

REPORT INFORMATION
  Report Type: 
  Country: None (occurrence: None)
  Receive Date: 20041117
  Receipt Date: 20041101
  Transmission Date: 20050328
  Serious: No
  Sender: FDA-Public Use
  Company Number: 9231

PATIENT
  Age: 10 Year
  Sex: Female

DRUGS (2)
  1. VINCRISTINE [Suspect]
     Indication: NEPHROBLASTOMA
     Dosage: 1.5 MG/M2 WEEKLY
  2. ACTINOMYCIN D [Concomitant]

REACTIONS (6)
  - DIFFICULTY IN WALKING [None]
  - GAIT DISTURBANCE [None]
  - NEUROPATHY PERIPHERAL [None]
  - NEUROTOXICITY [None]
  - PERONEAL MUSCULAR ATROPHY [None]
  - PERONEAL NERVE PALSY [None]
